FAERS Safety Report 8672890 (Version 4)
Quarter: 2013Q2

REPORT INFORMATION
  Report Type: Report from Study
  Country: JP (occurrence: JP)
  Receive Date: 20120719
  Receipt Date: 20130412
  Transmission Date: 20140414
  Serious: Yes (Other)
  Sender: FDA-Public Use
  Company Number: JP-009507513-1207JPN005833

PATIENT
  Age: 65 Year
  Sex: Female
  Weight: 50 kg

DRUGS (9)
  1. PEGINTRON [Suspect]
     Indication: CHRONIC HEPATITIS C
     Dosage: 80 MICROGRAM, QW
     Route: 058
     Dates: start: 20120614, end: 20120920
  2. PEGINTRON [Suspect]
     Dosage: 40 MICROGRAM PER KILOGRAM, ONCE 2 WEEKS
     Route: 058
     Dates: start: 20121018, end: 20121101
  3. PEGINTRON [Suspect]
     Dosage: 40 MICROGRAM PER KILOGRAM, UNK
     Route: 058
     Dates: start: 20121108
  4. REBETOL [Suspect]
     Indication: CHRONIC HEPATITIS C
     Dosage: 600 MG, QD
     Route: 048
     Dates: start: 20120614, end: 20120627
  5. REBETOL [Suspect]
     Dosage: 400 MG, QD
     Route: 048
     Dates: start: 20120628, end: 20120829
  6. REBETOL [Suspect]
     Dosage: 400MG/600MG EVERY OTHER DAY
     Route: 048
     Dates: start: 20120830, end: 20120919
  7. REBETOL [Suspect]
     Dosage: 400 UNK, UNK
     Route: 048
     Dates: start: 20120920, end: 20121114
  8. REBETOL [Suspect]
     Dosage: 400 UNK, UNK
     Route: 048
     Dates: start: 20121115
  9. TELAVIC [Suspect]
     Indication: CHRONIC HEPATITIS C
     Dosage: 1500 MG, ONCE
     Route: 048
     Dates: start: 20120614, end: 20120627

REACTIONS (1)
  - Hyperamylasaemia [Recovered/Resolved]
